FAERS Safety Report 6498968-5 (Version None)
Quarter: 2009Q4

REPORT INFORMATION
  Report Type: 
  Country: None (occurrence: None)
  Receive Date: 20091215
  Receipt Date: 20091201
  Transmission Date: 20100525
  Serious: Yes (Death, Hospitalization)
  Sender: FDA-Public Use
  Company Number: NZ-MYLANLABS-2009S1020673

PATIENT
  Age: 47 Year
  Sex: Male

DRUGS (3)
  1. ALBUTEROL SULFATE AUTOHALER [Suspect]
     Indication: ASTHMA
     Dosage: SALMETEROL 25MCG TWO PUFFS TWICE DAILY
     Route: 055
  2. ALBUTEROL [Suspect]
     Indication: ASTHMA
     Dosage: 2 PUFFS AS NEEDED
     Route: 055
  3. FLUTICASONE PROPIONATE [Concomitant]
     Indication: ASTHMA
     Dosage: FLUTICASONE PROPIONATE 250MCG TWO PUFFS TWICE DAILY
     Route: 055

REACTIONS (2)
  - CARDIAC FAILURE [None]
  - CONGESTIVE CARDIOMYOPATHY [None]
